FAERS Safety Report 4906426-1 (Version None)
Quarter: 2006Q1

REPORT INFORMATION
  Report Type: 
  Country: None (occurrence: None)
  Receive Date: 20060206
  Receipt Date: 20060127
  Transmission Date: 20060701
  Serious: No
  Sender: FDA-Public Use
  Company Number: 221527

PATIENT
  Age: 41 Year
  Sex: Female

DRUGS (1)
  1. XOLAIR (OMALIZUMAB)PWDR + SOLVENT, INJECTION SOLN, 150MG [Suspect]
     Indication: ASTHMA
     Dosage: 375 MG, SUBCUTANEOUS
     Route: 058
     Dates: start: 20060125, end: 20060126

REACTIONS (3)
  - FLUSHING [None]
  - HYPERHIDROSIS [None]
  - NAUSEA [None]
